FAERS Safety Report 24526450 (Version 3)
Quarter: 2024Q4

REPORT INFORMATION
  Report Type: Spontaneous
  Country: JP (occurrence: JP)
  Receive Date: 20241021
  Receipt Date: 20241205
  Transmission Date: 20250115
  Serious: Yes (Death, Hospitalization, Other)
  Sender: GLAXOSMITHKLINE
  Company Number: JP-GSKJP-JP2024JPN127578AA

PATIENT

DRUGS (3)
  1. DAPRODUSTAT [Suspect]
     Active Substance: DAPRODUSTAT
     Indication: Nephrogenic anaemia
     Dosage: 4 MG
     Route: 048
  2. VIVIANT [Concomitant]
     Active Substance: BAZEDOXIFENE
     Indication: Osteoporosis
     Dosage: UNK
  3. ELDECALCITOL [Concomitant]
     Active Substance: ELDECALCITOL
     Indication: Blood cholesterol
     Dosage: UNK

REACTIONS (2)
  - Death [Fatal]
  - Coronavirus infection [Recovered/Resolved]

NARRATIVE: CASE EVENT DATE: 20241012
